FAERS Safety Report 8934989 (Version 6)
Quarter: 2014Q1

REPORT INFORMATION
  Report Type: Spontaneous
  Country: US (occurrence: US)
  Receive Date: 20121129
  Receipt Date: 20140314
  Transmission Date: 20141002
  Serious: Yes (Hospitalization)
  Sender: FDA-Public Use
  Company Number: US-009507513-1211USA010734

PATIENT
  Sex: Male
  Weight: 93.88 kg

DRUGS (1)
  1. PROPECIA [Suspect]
     Indication: PROPHYLAXIS
     Dosage: 1 MG, QD
     Route: 048
     Dates: start: 19990714, end: 20100421

REACTIONS (18)
  - Appendicitis [Unknown]
  - Cognitive disorder [Not Recovered/Not Resolved]
  - Anxiety [Unknown]
  - Ligament sprain [Unknown]
  - Upper respiratory tract infection [Unknown]
  - Benign neoplasm of skin [Unknown]
  - Intervertebral disc protrusion [Recovering/Resolving]
  - Gastrooesophageal reflux disease [Recovering/Resolving]
  - Dyshidrotic eczema [Unknown]
  - Onychomycosis [Recovered/Resolved]
  - Nasal septum deviation [Unknown]
  - Organic erectile dysfunction [Recovered/Resolved]
  - Depression [Unknown]
  - Sexual dysfunction [Not Recovered/Not Resolved]
  - Libido decreased [Unknown]
  - Pollakiuria [Unknown]
  - Micturition urgency [Unknown]
  - Urinary tract infection [Unknown]
